FAERS Safety Report 20612141 (Version 1)
Quarter: 2022Q1

REPORT INFORMATION
  Report Type: Spontaneous
  Country: KR (occurrence: KR)
  Receive Date: 20220318
  Receipt Date: 20220318
  Transmission Date: 20220424
  Serious: Yes (Other)
  Sender: FDA-Public Use
  Company Number: KR-NOVARTISPH-NVSC2022KR062117

PATIENT
  Age: 61 Year
  Sex: Male

DRUGS (1)
  1. ENTRESTO [Suspect]
     Active Substance: SACUBITRIL\VALSARTAN
     Indication: Product used for unknown indication
     Dosage: UNK UNK, BID (5 TABLETS IN THE MORNING,1 TABLET IN THE EVENING)
     Route: 065

REACTIONS (6)
  - Skin necrosis [Unknown]
  - Skin discolouration [Unknown]
  - Pruritus [Unknown]
  - Erythema [Unknown]
  - Swelling [Unknown]
  - Inappropriate schedule of product administration [Unknown]
